FAERS Safety Report 9822438 (Version 1)
Quarter: 2014Q1

REPORT INFORMATION
  Report Type: Spontaneous
  Country: US (occurrence: US)
  Receive Date: 20140116
  Receipt Date: 20140116
  Transmission Date: 20141002
  Serious: No
  Sender: FDA-Public Use
  Company Number: US-009507513-1312USA008631

PATIENT
  Age: 28 Year
  Sex: Female
  Weight: 90.7 kg

DRUGS (2)
  1. IMPLANON [Suspect]
     Indication: CONTRACEPTION
     Dosage: UNK
     Route: 059
     Dates: start: 20121031
  2. ZOLOFT [Concomitant]

REACTIONS (3)
  - Menorrhagia [Unknown]
  - Headache [Unknown]
  - Weight increased [Unknown]
